FAERS Safety Report 7042496-5 (Version None)
Quarter: 2010Q4

REPORT INFORMATION
  Report Type: 
  Country: None (occurrence: None)
  Receive Date: 20101013
  Receipt Date: 20100429
  Transmission Date: 20110411
  Serious: No
  Sender: FDA-Public Use
  Company Number: US-ASTRAZENECA-2010SE19753

PATIENT
  Age: 18101 Day
  Sex: Female
  Weight: 108.9 kg

DRUGS (1)
  1. SYMBICORT [Suspect]
     Indication: ASTHMA
     Route: 055
     Dates: start: 20100421, end: 20100421

REACTIONS (2)
  - FLUSHING [None]
  - PALPITATIONS [None]
